FAERS Safety Report 23917901 (Version 1)
Quarter: 2024Q2

REPORT INFORMATION
  Report Type: Spontaneous
  Country: CN (occurrence: CN)
  Receive Date: 20240530
  Receipt Date: 20240530
  Transmission Date: 20240715
  Serious: Yes (Hospitalization)
  Sender: FDA-Public Use
  Company Number: CN-NOVITIUMPHARMA-2024CNNVP00952

PATIENT
  Age: 38 Year
  Sex: Male

DRUGS (3)
  1. DEXAMETHASONE [Suspect]
     Active Substance: DEXAMETHASONE
     Indication: Organising pneumonia
     Route: 042
  2. DEXAMETHASONE [Suspect]
     Active Substance: DEXAMETHASONE
     Route: 042
  3. METHYLPREDNISOLONE [Concomitant]
     Active Substance: METHYLPREDNISOLONE
     Indication: Organising pneumonia
     Route: 042

REACTIONS (1)
  - Drug ineffective [Unknown]
